FAERS Safety Report 14747292 (Version 4)
Quarter: 2020Q1

REPORT INFORMATION
  Report Type: Spontaneous
  Country: US (occurrence: US)
  Receive Date: 20180411
  Receipt Date: 20200129
  Transmission Date: 20200409
  Serious: Yes (Hospitalization, Other)
  Sender: FDA-Public Use
  Company Number: US-VIFOR (INTERNATIONAL) INC.-VIT-2018-03371

PATIENT
  Age: 86 Year
  Sex: Male

DRUGS (21)
  1. COENZYME Q10 [Concomitant]
     Active Substance: UBIDECARENONE
  2. DIGOXIN. [Concomitant]
     Active Substance: DIGOXIN
  3. DILTIAZEM HYDROCHLORIDE. [Concomitant]
     Active Substance: DILTIAZEM HYDROCHLORIDE
  4. ENALAPRIL MALEATE. [Concomitant]
     Active Substance: ENALAPRIL MALEATE
  5. FUROSEMIDE. [Concomitant]
     Active Substance: FUROSEMIDE
  6. PLAVIX [Concomitant]
     Active Substance: CLOPIDOGREL BISULFATE
  7. VITAMIN B12 [Concomitant]
     Active Substance: CYANOCOBALAMIN
  8. TURMERIC [Concomitant]
     Active Substance: HERBALS\TURMERIC
  9. ATORVASTATIN [Concomitant]
     Active Substance: ATORVASTATIN
  10. VALSARTAN. [Concomitant]
     Active Substance: VALSARTAN
  11. ALIGN [Concomitant]
     Active Substance: BIFIDOBACTERIUM LONGUM SUBSP. INFANTIS
  12. FENOFIBRATE. [Concomitant]
     Active Substance: FENOFIBRATE
  13. FLONASE [Concomitant]
     Active Substance: FLUTICASONE PROPIONATE
  14. NITROSTAT [Concomitant]
     Active Substance: NITROGLYCERIN
  15. VELTASSA [Suspect]
     Active Substance: PATIROMER
     Indication: HYPERKALAEMIA
     Route: 048
     Dates: start: 20160510
  16. VITAMIN D3 [Concomitant]
     Active Substance: CHOLECALCIFEROL
  17. VITAMIN E [Concomitant]
     Active Substance: .ALPHA.-TOCOPHEROL
  18. ASPIRIN. [Concomitant]
     Active Substance: ASPIRIN
  19. CALCIUM [Concomitant]
     Active Substance: CALCIUM
  20. BAYER LOW DOSE [Concomitant]
     Active Substance: ASPIRIN
  21. LUPRON DEPOT [Concomitant]
     Active Substance: LEUPROLIDE ACETATE

REACTIONS (5)
  - Internal haemorrhage [Unknown]
  - Off label use [Unknown]
  - Fall [Unknown]
  - Haemoglobin decreased [Unknown]
  - Product dose omission [Unknown]

NARRATIVE: CASE EVENT DATE: 20160510
